FAERS Safety Report 20583842 (Version 1)
Quarter: 2022Q1

REPORT INFORMATION
  Report Type: Spontaneous
  Country: US (occurrence: None)
  Receive Date: 20220311
  Receipt Date: 20220311
  Transmission Date: 20220424
  Serious: Yes (Other)
  Sender: FDA-Public Use
  Company Number: None

PATIENT
  Age: 71 Year
  Sex: Female
  Weight: 62.1 kg

DRUGS (1)
  1. CYCLOSPORINE [Suspect]
     Active Substance: CYCLOSPORINE
     Indication: Dry eye
     Dosage: OTHER QUANTITY : 60 DROP(S);?FREQUENCY : TWICE A DAY;?
     Route: 047
     Dates: start: 20220309, end: 20220309

REACTIONS (8)
  - Eye pain [None]
  - Eye irritation [None]
  - Eye injury [None]
  - Ocular hyperaemia [None]
  - Vision blurred [None]
  - Feeling abnormal [None]
  - Product complaint [None]
  - Product substitution issue [None]

NARRATIVE: CASE EVENT DATE: 20220309
